FAERS Safety Report 7281539-0 (Version None)
Quarter: 2011Q1

REPORT INFORMATION
  Report Type: 
  Country: None (occurrence: None)
  Receive Date: 20110208
  Receipt Date: 20110128
  Transmission Date: 20110831
  Serious: Yes (Hospitalization, Other)
  Sender: FDA-Public Use
  Company Number: PHFR2011GB01068

PATIENT
  Sex: Male

DRUGS (4)
  1. METHADONE HYDROCHLORIDE [Concomitant]
     Indication: DRUG DEPENDENCE
     Dosage: 45 MG
     Route: 048
     Dates: start: 20110107
  2. CLOZARIL [Suspect]
     Dosage: 200 MG
     Route: 048
     Dates: start: 20110107
  3. OMEPRAZOLE [Concomitant]
     Indication: HYPERCHLORHYDRIA
     Dosage: 20 MG
     Route: 048
     Dates: start: 20110107
  4. CLOZARIL [Suspect]
     Indication: SCHIZOPHRENIA
     Dosage: UNK
     Route: 048
     Dates: start: 20100408

REACTIONS (4)
  - HEPATITIS C [None]
  - PSYCHOTIC DISORDER [None]
  - SOMNOLENCE [None]
  - PEPTIC ULCER [None]
